FAERS Safety Report 7296403-0 (Version None)
Quarter: 2011Q1

REPORT INFORMATION
  Report Type: 
  Country: None (occurrence: None)
  Receive Date: 20110216
  Receipt Date: 20110210
  Transmission Date: 20110831
  Serious: Yes (Hospitalization, Other)
  Sender: FDA-Public Use
  Company Number: JP-BRACCO-004377

PATIENT
  Sex: Male
  Weight: 65 kg

DRUGS (7)
  1. TRAZODONE HYDROCHLORIDE [Concomitant]
     Route: 065
  2. DARICON [Concomitant]
     Route: 065
  3. DIART [Concomitant]
     Route: 065
  4. IOPAMIDOL [Suspect]
     Indication: ANEURYSM REPAIR
     Route: 042
     Dates: start: 20100225, end: 20100225
  5. NORVASC [Concomitant]
     Route: 065
  6. SULPIRIDE [Concomitant]
     Route: 065
  7. DEPAS [Concomitant]
     Route: 065

REACTIONS (3)
  - CEREBRAL INFARCTION [None]
  - BRAIN OEDEMA [None]
  - CENTRAL NERVOUS SYSTEM LESION [None]
